FAERS Safety Report 10428948 (Version 2)
Quarter: 2014Q3

REPORT INFORMATION
  Report Type: Spontaneous
  Country: US (occurrence: US)
  Receive Date: 20140904
  Receipt Date: 20140906
  Transmission Date: 20150326
  Serious: No
  Sender: FDA-Public Use
  Company Number: US-009507513-1409USA000156

PATIENT
  Age: 14 Year
  Sex: Female
  Weight: 57.14 kg

DRUGS (3)
  1. DIVALPROEX SODIUM. [Concomitant]
     Active Substance: DIVALPROEX SODIUM
  2. ABILIFY [Concomitant]
     Active Substance: ARIPIPRAZOLE
     Indication: BIPOLAR DISORDER
  3. NEXPLANON [Suspect]
     Active Substance: ETONOGESTREL
     Indication: CONTRACEPTION
     Dosage: 3 YEAR IMPLANT
     Route: 059
     Dates: start: 20140626

REACTIONS (3)
  - Muscle spasms [Unknown]
  - Haemorrhage [Unknown]
  - Abdominal distension [Unknown]

NARRATIVE: CASE EVENT DATE: 201406
